FAERS Safety Report 19701827 (Version 1)
Quarter: 2021Q3

REPORT INFORMATION
  Report Type: Report from Study
  Country: GB (occurrence: GB)
  Receive Date: 20210813
  Receipt Date: 20210813
  Transmission Date: 20211014
  Serious: Yes (Other)
  Sender: FDA-Public Use
  Company Number: GB-ROCHE-2887383

PATIENT
  Age: 76 Year
  Sex: Male
  Weight: 92 kg

DRUGS (5)
  1. ATEZOLIZUMAB. [Suspect]
     Active Substance: ATEZOLIZUMAB
     Indication: PLEURAL MESOTHELIOMA MALIGNANT
     Dosage: 09/JUN/2021, RECEIVED ATEZOLIZUMAB BEFORE SAE
     Route: 041
     Dates: start: 20200109
  2. PEMETREXED. [Suspect]
     Active Substance: PEMETREXED
     Indication: PLEURAL MESOTHELIOMA MALIGNANT
     Dosage: 19/MAR/2020, RECEIVED PEMETREXED AST ADMINISTRATIONBEFORE SAE
     Route: 042
     Dates: start: 20200109
  3. BEVACIZUMAB. [Suspect]
     Active Substance: BEVACIZUMAB
     Indication: PLEURAL MESOTHELIOMA MALIGNANT
     Dosage: ON 09/JUN/2021, RECEIVED BEVACIZUMAB AST ADMINISTRATION BEFORER SAE
     Route: 042
     Dates: start: 20200109
  4. PREDNISOLONE. [Concomitant]
     Active Substance: PREDNISOLONE
  5. CARBOPLATIN. [Suspect]
     Active Substance: CARBOPLATIN
     Indication: PLEURAL MESOTHELIOMA MALIGNANT
     Dosage: 19/MAR/2020, RECEIVED LAST ADMINISTRATION BEFORE CARBOPLATIN SAE
     Route: 042
     Dates: start: 20200109

REACTIONS (1)
  - Colitis [Not Recovered/Not Resolved]

NARRATIVE: CASE EVENT DATE: 20210806
